FAERS Safety Report 8099519-4 (Version None)
Quarter: 2012Q1

REPORT INFORMATION
  Report Type: 
  Country: None (occurrence: None)
  Receive Date: 20120129
  Receipt Date: 20110926
  Transmission Date: 20120608
  Serious: No
  Sender: FDA-Public Use
  Company Number: US-ABBOTT-11P-163-0858090-00

PATIENT
  Sex: Female

DRUGS (12)
  1. HUMIRA [Suspect]
     Indication: ANKYLOSING SPONDYLITIS
     Dates: start: 20100701, end: 20101201
  2. HUMIRA [Suspect]
     Dates: start: 20110301
  3. EFFEXOR [Concomitant]
     Indication: DEPRESSION
  4. XANAX [Concomitant]
     Indication: ANXIETY
  5. METOPROLOL TARTRATE [Concomitant]
     Indication: HYPERTENSION
  6. PREDNISONE TAB [Concomitant]
     Indication: ANKYLOSING SPONDYLITIS
  7. SIMVASTATIN [Concomitant]
     Indication: BLOOD CHOLESTEROL INCREASED
  8. MAXALT [Concomitant]
     Indication: MIGRAINE
  9. OMEPRAZOLE [Concomitant]
     Indication: GASTROOESOPHAGEAL REFLUX DISEASE
  10. TIMOLOL MALEATE [Concomitant]
     Indication: MIGRAINE
  11. PROMETHAZINE [Concomitant]
     Indication: NAUSEA
  12. FLEXERIL [Concomitant]
     Indication: MUSCLE SPASMS

REACTIONS (2)
  - SINUSITIS [None]
  - INJECTION SITE PAIN [None]
